FAERS Safety Report 6386897 (Version 2)
Quarter: 2021Q1

REPORT INFORMATION
  Report Type: Spontaneous
  Country: US (occurrence: US)
  Receive Date: 20070820
  Receipt Date: 20210107
  Transmission Date: 20210420
  Serious: Yes (Other)
  Sender: FDA-Public Use
  Company Number: US-PURDUE-USA_2007_0028166

PATIENT
  Age: 34 Year
  Sex: Male
  Weight: 117.91 kg

DRUGS (5)
  1. OXYCONTIN [Suspect]
     Active Substance: OXYCODONE HYDROCHLORIDE
     Indication: PAIN
     Dosage: UNK, SEE TEXT
     Route: 048
     Dates: start: 19950705, end: 199912
  2. MS CONTIN [Suspect]
     Active Substance: MORPHINE SULFATE
     Indication: PRODUCT USED FOR UNKNOWN INDICATION
     Dosage: UNK
     Route: 048
  3. LORCET [Concomitant]
     Active Substance: ACETAMINOPHEN\HYDROCODONE BITARTRATE
     Indication: PRODUCT USED FOR UNKNOWN INDICATION
     Dosage: UNK
     Route: 065
  4. ELAVIL [Concomitant]
     Active Substance: AMITRIPTYLINE HYDROCHLORIDE
     Indication: PRODUCT USED FOR UNKNOWN INDICATION
     Dosage: 100 MG, UNK
     Route: 065
  5. ATIVAN [Concomitant]
     Active Substance: LORAZEPAM
     Indication: PRODUCT USED FOR UNKNOWN INDICATION
     Dosage: UNK
     Route: 065

REACTIONS (11)
  - Drug dependence [Unknown]
  - Confusional state [Unknown]
  - Dizziness [Unknown]
  - Depression [Unknown]
  - Nausea [Unknown]
  - Rash [Unknown]
  - Dermatitis [Unknown]
  - Nervousness [Unknown]
  - Suicidal ideation [Unknown]
  - Syncope [Unknown]
  - Asthenia [Unknown]

NARRATIVE: CASE EVENT DATE: 199610
